FAERS Safety Report 7260257 (Version 2)
Quarter: 2013Q4

REPORT INFORMATION
  Report Type: Spontaneous
  Country: US (occurrence: None)
  Receive Date: 20100119
  Receipt Date: 20131108
  Transmission Date: 20140711
  Serious: Yes (Other)
  Sender: FDA-Public Use
  Company Number: 2010S1000084

PATIENT
  Age: 65 Year
  Sex: Male
  Weight: 68.63 kg

DRUGS (6)
  1. SODIUM PHOSPHATE, DIBASIC [Suspect]
     Indication: SIGMOIDOSCOPY
     Dosage: 90 ML 45ML AT 3:00PM AND 45ML AT 7:00PM ORAL
     Route: 048
     Dates: start: 20050410, end: 20050410
  2. BENAZEPRIL [Concomitant]
  3. CLOTRIMAZOLE [Concomitant]
  4. LORATADINE [Concomitant]
  5. OMEPRAZOLE [Concomitant]
  6. UREA CREAM (UREA) [Concomitant]

REACTIONS (1)
  - Renal failure chronic [None]
